FAERS Safety Report 6233951-6 (Version None)
Quarter: 2009Q2

REPORT INFORMATION
  Report Type: 
  Country: None (occurrence: None)
  Receive Date: 20090618
  Receipt Date: 20090616
  Transmission Date: 20091009
  Serious: Yes (Other)
  Sender: FDA-Public Use
  Company Number: CA-ALLERGAN-0812160US

PATIENT
  Age: 75 Year
  Sex: Male

DRUGS (1)
  1. LUMIGAN [Suspect]
     Indication: OCULAR HYPERTENSION
     Dosage: 1 GTT, QHS
     Route: 047
     Dates: start: 20080926

REACTIONS (1)
  - TRIGEMINAL NEURALGIA [None]
